FAERS Safety Report 26152589 (Version 1)
Quarter: 2025Q4

REPORT INFORMATION
  Report Type: Report from Study
  Country: US (occurrence: US)
  Receive Date: 20251214
  Receipt Date: 20251214
  Transmission Date: 20260118
  Serious: Yes (Other)
  Sender: GALDERMA
  Company Number: US-GALDERMA-US2025025769

PATIENT

DRUGS (1)
  1. NEMOLIZUMAB [Suspect]
     Active Substance: NEMOLIZUMAB
     Indication: Neurodermatitis
     Route: 058

REACTIONS (8)
  - Delirium [Unknown]
  - Autoimmune disorder [Unknown]
  - Hypersensitivity [Unknown]
  - Migraine [Unknown]
  - Anxiety [Unknown]
  - Insomnia [Unknown]
  - Pyrexia [Unknown]
  - Vomiting [Unknown]
